FAERS Safety Report 21228338 (Version 1)
Quarter: 2022Q3

REPORT INFORMATION
  Report Type: Spontaneous
  Country: US (occurrence: US)
  Receive Date: 20220818
  Receipt Date: 20220818
  Transmission Date: 20221027
  Serious: Yes (Hospitalization, Other)
  Sender: FDA-Public Use
  Company Number: US-UNITED THERAPEUTICS-UNT-2022-018563

PATIENT
  Age: 60 Year
  Sex: Female
  Weight: 80 kg

DRUGS (6)
  1. REMODULIN [Suspect]
     Active Substance: TREPROSTINIL
     Indication: Product used for unknown indication
     Dosage: UNK
     Route: 058
  2. VELETRI [Suspect]
     Active Substance: EPOPROSTENOL
     Indication: Pulmonary hypertension
     Dosage: 0.010 ?G/KG, CONTINUING
     Route: 041
  3. VELETRI [Suspect]
     Active Substance: EPOPROSTENOL
     Dosage: UNK, CONTINUING
     Route: 041
  4. VELETRI [Suspect]
     Active Substance: EPOPROSTENOL
     Dosage: 0.010 ?G/KG, CONTINUING
     Route: 041
  5. VELETRI [Suspect]
     Active Substance: EPOPROSTENOL
     Dosage: UNK, CONTINUING
     Route: 041
  6. VELETRI [Suspect]
     Active Substance: EPOPROSTENOL
     Dosage: 0.014 ?G/KG, CONTINUING
     Route: 041

REACTIONS (20)
  - Vascular device infection [Unknown]
  - Nausea [Unknown]
  - Vomiting [Unknown]
  - Back pain [Unknown]
  - Abdominal pain [Unknown]
  - Abdominal tenderness [Unknown]
  - Diarrhoea [Unknown]
  - Herpes zoster [Unknown]
  - Decreased appetite [Unknown]
  - Ageusia [Unknown]
  - Dysgeusia [Unknown]
  - Pain in jaw [Unknown]
  - Headache [Unknown]
  - Photosensitivity reaction [Unknown]
  - Catheter site erythema [Unknown]
  - Catheter site discharge [Unknown]
  - Underdose [Unknown]
  - SARS-CoV-2 test positive [Unknown]
  - Flushing [Unknown]
  - Rash [Unknown]

NARRATIVE: CASE EVENT DATE: 20220701
